FAERS Safety Report 17479839 (Version 10)
Quarter: 2020Q3

REPORT INFORMATION
  Report Type: Spontaneous
  Country: US (occurrence: US)
  Receive Date: 20200229
  Receipt Date: 20200817
  Transmission Date: 20201102
  Serious: Yes (Hospitalization, Congenital Anomaly, Other)
  Sender: FDA-Public Use
  Company Number: NVSC2020US055644

PATIENT
  Age: 0 Day
  Sex: Female

DRUGS (4)
  1. ZOFRAN [Suspect]
     Active Substance: ONDANSETRON HYDROCHLORIDE
     Indication: FOETAL EXPOSURE DURING PREGNANCY
     Dosage: MOTHER DOSE: 04 MG, Q4H, AS NEEDED (PRN)
     Route: 064
  2. ZOFRAN [Suspect]
     Active Substance: ONDANSETRON HYDROCHLORIDE
     Indication: FOETAL EXPOSURE DURING PREGNANCY
     Dosage: MOTHER DOSE: 04 MG, PRN
     Route: 064
  3. ZOFRAN [Suspect]
     Active Substance: ONDANSETRON HYDROCHLORIDE
     Indication: FOETAL EXPOSURE DURING PREGNANCY
     Dosage: MOTHER DOSE: 04 MG
     Route: 064
  4. ZOFRAN ODT [Suspect]
     Active Substance: ONDANSETRON HYDROCHLORIDE
     Indication: FOETAL EXPOSURE DURING PREGNANCY
     Route: 064

REACTIONS (134)
  - Small for dates baby [Unknown]
  - Low set ears [Unknown]
  - Otitis media chronic [Unknown]
  - Pulmonary hypertension [Unknown]
  - Hypoxia [Unknown]
  - Apnoea [Unknown]
  - Pallor [Unknown]
  - Discordant twin [Unknown]
  - Hyperbilirubinaemia neonatal [Recovered/Resolved]
  - Genital swelling [Unknown]
  - Obstructive airways disorder [Unknown]
  - Tachypnoea [Unknown]
  - Ventricular hypertrophy [Unknown]
  - Rhinorrhoea [Recovered/Resolved]
  - Eustachian tube dysfunction [Unknown]
  - Ligament sprain [Unknown]
  - Ear pain [Unknown]
  - Laevocardia [Unknown]
  - Spina bifida occulta [Unknown]
  - Limb crushing injury [Unknown]
  - Ventricular enlargement [Unknown]
  - Skin lesion [Unknown]
  - Hypoacusis [Unknown]
  - Atelectasis [Unknown]
  - Swelling face [Unknown]
  - Camptodactyly acquired [Unknown]
  - Feeding disorder [Unknown]
  - Gastrooesophageal reflux disease [Unknown]
  - Soft tissue injury [Unknown]
  - Snoring [Unknown]
  - Tenderness [Unknown]
  - Teething [Unknown]
  - Right ventricular systolic pressure increased [Unknown]
  - Pyrexia [Unknown]
  - Flatulence [Unknown]
  - Asthma [Unknown]
  - Dandy-Walker syndrome [Unknown]
  - Micrognathia [Unknown]
  - Ventricular septal defect [Unknown]
  - Cerebral haemorrhage [Unknown]
  - Croup infectious [Unknown]
  - Constipation [Unknown]
  - Oropharyngeal pain [Unknown]
  - Upper respiratory tract infection [Unknown]
  - Gastrostomy failure [Unknown]
  - Fallot^s tetralogy [Unknown]
  - Patent ductus arteriosus [Unknown]
  - Foetal growth restriction [Unknown]
  - Impaired gastric emptying [Unknown]
  - Bradycardia [Unknown]
  - Vascular resistance pulmonary increased [Unknown]
  - Pulmonary congestion [Unknown]
  - Respiratory distress [Unknown]
  - Pulmonary valve incompetence [Unknown]
  - Metapneumovirus infection [Recovered/Resolved]
  - Sepsis neonatal [Unknown]
  - Choking [Unknown]
  - Rash [Unknown]
  - Hypokinesia [Unknown]
  - Acute sinusitis [Unknown]
  - Hypoglycaemia [Unknown]
  - Lethargy [Unknown]
  - Bundle branch block right [Unknown]
  - Otospondylomegaepiphyseal dysplasia [Unknown]
  - Single umbilical artery [Unknown]
  - Ankyloglossia congenital [Unknown]
  - Pericardial effusion [Unknown]
  - Pneumonia [Recovering/Resolving]
  - Cardiac arrest [Recovered/Resolved]
  - Foetal exposure during pregnancy [Unknown]
  - Dyspnoea [Unknown]
  - Sinus tachycardia [Unknown]
  - Glossoptosis [Unknown]
  - Selective eating disorder [Unknown]
  - Red ear syndrome [Recovered/Resolved]
  - Vomiting [Unknown]
  - Wheezing [Unknown]
  - Gastroenteritis [Unknown]
  - Bronchospasm [Unknown]
  - Speech disorder [Unknown]
  - Heart disease congenital [Unknown]
  - Rhinovirus infection [Recovered/Resolved]
  - Failure to thrive [Unknown]
  - Respiratory failure [Unknown]
  - Thrombocytosis [Unknown]
  - Dysphagia [Unknown]
  - Retching [Unknown]
  - Pain in extremity [Unknown]
  - Effusion [Unknown]
  - Viral infection [Unknown]
  - Otorrhoea [Unknown]
  - Eye discharge [Unknown]
  - Cleft palate [Unknown]
  - Atrial septal defect [Unknown]
  - Pulmonary hypoplasia [Unknown]
  - Pulmonary valve stenosis [Recovered/Resolved]
  - Conjunctivitis bacterial [Unknown]
  - Developmental delay [Unknown]
  - Leukocytosis [Recovered/Resolved]
  - Feeding intolerance [Unknown]
  - Pain [Unknown]
  - Blepharophimosis [Unknown]
  - Respiratory disorder [Unknown]
  - Soft tissue swelling [Unknown]
  - Cyanosis [Unknown]
  - Abdominal discomfort [Unknown]
  - Gastrostomy tube site complication [Unknown]
  - Rhinitis allergic [Unknown]
  - Cerumen impaction [Unknown]
  - Language disorder [Unknown]
  - Cardiac septal defect [Unknown]
  - Left-to-right cardiac shunt [Unknown]
  - Congenital skin dimples [Unknown]
  - Dysmorphism [Unknown]
  - Cardiac failure congestive [Unknown]
  - Premature baby [Unknown]
  - Hypotonia neonatal [Unknown]
  - Deafness neurosensory [Unknown]
  - Bronchiolitis [Recovered/Resolved]
  - Pulmonary oedema [Unknown]
  - Ear infection [Unknown]
  - Cough [Unknown]
  - Cardiomegaly [Unknown]
  - Nasal congestion [Unknown]
  - Drooling [Unknown]
  - Lower limb fracture [Unknown]
  - Otitis media acute [Recovered/Resolved]
  - Hypophagia [Unknown]
  - Fall [Unknown]
  - Palpitations [Unknown]
  - Rash papular [Unknown]
  - Viral rash [Unknown]
  - Anaemia [Unknown]
  - Tibia fracture [Unknown]

NARRATIVE: CASE EVENT DATE: 20150819
